FAERS Safety Report 16208063 (Version 1)
Quarter: 2019Q2

REPORT INFORMATION
  Report Type: Spontaneous
  Country: FR (occurrence: FR)
  Receive Date: 20190417
  Receipt Date: 20190417
  Transmission Date: 20190711
  Serious: Yes (Hospitalization, Other)
  Sender: FDA-Public Use
  Company Number: FR-PFIZER INC-2019161178

PATIENT
  Age: 64 Year
  Sex: Female

DRUGS (8)
  1. MIOREL (THIOCOLCHICOSIDE) [Suspect]
     Active Substance: THIOCOLCHICOSIDE
     Indication: COMPLEX REGIONAL PAIN SYNDROME
     Dosage: UNK
     Route: 048
     Dates: start: 20190305, end: 20190312
  2. PANTOPRAZOLE [Concomitant]
     Active Substance: PANTOPRAZOLE
     Dosage: UNK
  3. ALPRAZOLAM. [Concomitant]
     Active Substance: ALPRAZOLAM
     Dosage: UNK
  4. CARBOSYMAG [ACTIVATED CHARCOAL\MAGNESIUM OXIDE\SIMETHICONE] [Concomitant]
     Active Substance: ACTIVATED CHARCOAL\MAGNESIUM OXIDE\SIMETHICONE
     Dosage: UNK
  5. DUPHALAC [Concomitant]
     Active Substance: LACTULOSE
     Dosage: UNK
  6. LYRICA [Suspect]
     Active Substance: PREGABALIN
     Indication: AUTOIMMUNE NEUROPATHY
     Dosage: 5 DF, DAILY (3.5 - 0 - 1.5)
     Route: 048
  7. CALCITONIN [Suspect]
     Active Substance: CALCITONIN
     Indication: OSTEOPOROSIS
     Dosage: 100 IU, DAILY
     Route: 058
     Dates: start: 20190219, end: 20190312
  8. TRAMADOL. [Concomitant]
     Active Substance: TRAMADOL
     Dosage: UNK

REACTIONS (4)
  - Face oedema [Recovered/Resolved]
  - Influenza like illness [Recovered/Resolved]
  - Cholestasis [Recovering/Resolving]
  - Erythema [Recovered/Resolved]

NARRATIVE: CASE EVENT DATE: 20190312
